FAERS Safety Report 7605126-7 (Version None)
Quarter: 2011Q3

REPORT INFORMATION
  Report Type: 
  Country: None (occurrence: None)
  Receive Date: 20110713
  Receipt Date: 20110207
  Transmission Date: 20111222
  Serious: Yes (Other)
  Sender: FDA-Public Use
  Company Number: DE-BAYER-201037028GPV

PATIENT
  Sex: Female
  Weight: 70 kg

DRUGS (4)
  1. CIPRO [Suspect]
     Dosage: UNK
     Route: 065
  2. CIPRO [Suspect]
     Indication: PRODUCT USED FOR UNKNOWN INDICATION
     Dosage: UNK
     Route: 065
  3. VOLTAREN [Concomitant]
  4. CONCOR PLUS [Concomitant]

REACTIONS (4)
  - PAIN IN EXTREMITY [None]
  - HYPOAESTHESIA [None]
  - TENDON PAIN [None]
  - SKIN NECROSIS [None]
